FAERS Safety Report 13965863 (Version 2)
Quarter: 2017Q4

REPORT INFORMATION
  Report Type: Report from Study
  Country: US (occurrence: US)
  Receive Date: 20170913
  Receipt Date: 20171013
  Transmission Date: 20180320
  Serious: Yes (Hospitalization, Other)
  Sender: FDA-Public Use
  Company Number: US-GILEAD-2017-0288991

PATIENT
  Age: 22 Year
  Sex: Female

DRUGS (11)
  1. UPTRAVI [Suspect]
     Active Substance: SELEXIPAG
     Indication: PRODUCT USED FOR UNKNOWN INDICATION
     Route: 065
  2. FUROSEMIDE. [Concomitant]
     Active Substance: FUROSEMIDE
  3. WARFARIN [Concomitant]
     Active Substance: WARFARIN
  4. AMBRISENTAN [Suspect]
     Active Substance: AMBRISENTAN
     Dosage: 10 MG, QD
     Route: 048
     Dates: start: 201612
  5. SERTRALINE [Concomitant]
     Active Substance: SERTRALINE HYDROCHLORIDE
  6. REMODULIN [Concomitant]
     Active Substance: TREPROSTINIL
  7. TRAMADOL. [Concomitant]
     Active Substance: TRAMADOL
  8. LORAZEPAM. [Concomitant]
     Active Substance: LORAZEPAM
  9. AMBRISENTAN [Suspect]
     Active Substance: AMBRISENTAN
     Indication: PULMONARY ARTERIAL HYPERTENSION
     Dosage: 5 MG, QD
     Route: 065
     Dates: start: 201609, end: 201612
  10. CIALIS [Concomitant]
     Active Substance: TADALAFIL
  11. KCL [Concomitant]
     Active Substance: POTASSIUM CHLORIDE

REACTIONS (8)
  - Klebsiella bacteraemia [Recovered/Resolved]
  - Pyelonephritis [Unknown]
  - Chest pain [Unknown]
  - Diarrhoea [Unknown]
  - Klebsiella bacteraemia [Unknown]
  - Pyrexia [Not Recovered/Not Resolved]
  - Device related infection [Unknown]
  - Sepsis [Unknown]

NARRATIVE: CASE EVENT DATE: 20170821
